FAERS Safety Report 19707853 (Version 1)
Quarter: 2021Q3

REPORT INFORMATION
  Report Type: Spontaneous
  Country: US (occurrence: US)
  Receive Date: 20210817
  Receipt Date: 20210817
  Transmission Date: 20211014
  Serious: No
  Sender: FDA-Public Use
  Company Number: US-TAKEDA-2021TUS050909

PATIENT
  Sex: Female
  Weight: 63 kg

DRUGS (1)
  1. GAMMAGARD LIQUID [Suspect]
     Active Substance: HUMAN IMMUNOGLOBULIN G
     Indication: IMMUNE SYSTEM DISORDER
     Dosage: 32 GRAM, Q4WEEKS
     Route: 042

REACTIONS (2)
  - No adverse event [Unknown]
  - Product dose omission issue [Unknown]
